FAERS Safety Report 16543659 (Version 1)
Quarter: 2019Q3

REPORT INFORMATION
  Report Type: Spontaneous
  Country: US (occurrence: US)
  Receive Date: 20190528
  Receipt Date: 20190528
  Transmission Date: 20191004
  Serious: Yes (Hospitalization)
  Sender: FDA-Public Use
  Company Number: None

PATIENT
  Age: 72 Year
  Sex: Male
  Weight: 124.92 kg

DRUGS (1)
  1. ROCURONIUM BROMIDE. [Suspect]
     Active Substance: ROCURONIUM BROMIDE
     Indication: CORONARY ARTERIAL STENT INSERTION
     Route: 042
     Dates: start: 20190524, end: 20190524

REACTIONS (3)
  - Respiratory depression [None]
  - Rash [None]
  - Hypotension [None]

NARRATIVE: CASE EVENT DATE: 20190524
